FAERS Safety Report 5256927-4 (Version None)
Quarter: 2007Q1

REPORT INFORMATION
  Report Type: 
  Country: None (occurrence: None)
  Receive Date: 20070305
  Receipt Date: 20070305
  Transmission Date: 20070707
  Serious: Yes (Disabling)
  Sender: FDA-Public Use
  Company Number: None

PATIENT
  Age: 39 Year
  Sex: Female
  Weight: 54.4316 kg

DRUGS (1)
  1. TAXOTERE [Suspect]
     Indication: BREAST CANCER
     Dosage: EVERY 21 DAYS IV
     Route: 042
     Dates: start: 20070207, end: 20070228

REACTIONS (5)
  - CARDIAC DISORDER [None]
  - CHEST PAIN [None]
  - ERYTHEMA [None]
  - INFUSION RELATED REACTION [None]
  - PRESYNCOPE [None]
